FAERS Safety Report 19602327 (Version 4)
Quarter: 2021Q3

REPORT INFORMATION
  Report Type: Spontaneous
  Country: US (occurrence: US)
  Receive Date: 20210723
  Receipt Date: 20210902
  Transmission Date: 20211014
  Serious: Yes (Other)
  Sender: FDA-Public Use
  Company Number: US-PFIZER INC-2021526048

PATIENT
  Age: 56 Year
  Sex: Female

DRUGS (2)
  1. TOZINAMERAN. [Suspect]
     Active Substance: TOZINAMERAN
     Indication: COVID-19 IMMUNISATION
     Dosage: DOSE NUMBER UNKNOWN, SINGLE
  2. IBRANCE [Suspect]
     Active Substance: PALBOCICLIB
     Dosage: 125 MG
     Dates: start: 20210205

REACTIONS (10)
  - Feeling hot [Unknown]
  - Hyperhidrosis [Unknown]
  - Fall [Unknown]
  - Malaise [Unknown]
  - Hip fracture [Unknown]
  - Stress fracture [Unknown]
  - Feeling abnormal [Unknown]
  - Stress [Unknown]
  - Weight increased [Unknown]
  - Swelling [Unknown]

NARRATIVE: CASE EVENT DATE: 2021
